FAERS Safety Report 6072153-3 (Version None)
Quarter: 2009Q1

REPORT INFORMATION
  Report Type: 
  Country: None (occurrence: None)
  Receive Date: 20090210
  Receipt Date: 20090204
  Transmission Date: 20090719
  Serious: Yes (Life-Threatening, Disabling, Other)
  Sender: FDA-Public Use
  Company Number: A0766621A

PATIENT
  Age: 52 Year
  Sex: Female

DRUGS (3)
  1. LAMICTAL [Suspect]
     Indication: INSOMNIA
     Dosage: 25MG PER DAY
     Route: 048
     Dates: start: 20090119, end: 20090131
  2. TRAZODONE HCL [Concomitant]
  3. PROZAC [Concomitant]

REACTIONS (10)
  - ADVERSE DRUG REACTION [None]
  - DISABILITY [None]
  - DYSPHAGIA [None]
  - IMPAIRED DRIVING ABILITY [None]
  - OFF LABEL USE [None]
  - PHARYNGEAL OEDEMA [None]
  - PRURITUS [None]
  - RASH [None]
  - SOMNOLENCE [None]
  - URTICARIA [None]
